FAERS Safety Report 8598517-1 (Version None)
Quarter: 2012Q3

REPORT INFORMATION
  Report Type: 
  Country: None (occurrence: None)
  Receive Date: 20120806
  Receipt Date: 20120806
  Transmission Date: 20120928
  Serious: Yes (Hospitalization)
  Sender: FDA-Public Use
  Company Number: None

PATIENT
  Age: 55 Year
  Sex: Female
  Weight: 61.3263 kg

DRUGS (12)
  1. ERLOTINIB HYDROCHLORIDE [Concomitant]
  2. CLINDAMYCIN [Concomitant]
  3. BUPROPIN HCL [Concomitant]
  4. OXYCODONE HCL [Concomitant]
  5. DESONIDE [Concomitant]
  6. SODIUM CHLORIDE NASAL SPRAY [Concomitant]
  7. TACRALIMUS [Concomitant]
  8. IBUPROFEN [Suspect]
     Indication: PAIN
     Dosage: 200 MG, 3X/DAY, PO
     Route: 048
     Dates: start: 20120320, end: 20120721
  9. MINOCYCLINE HCL [Concomitant]
  10. LOPERAMIDE [Concomitant]
  11. HYDROQUINONE [Concomitant]
  12. CODEINE-GUAIFENESIN [Concomitant]

REACTIONS (5)
  - PYREXIA [None]
  - URTICARIA [None]
  - RESPIRATORY TRACT INFECTION [None]
  - COLITIS [None]
  - RECTAL HAEMORRHAGE [None]
